FAERS Safety Report 14045076 (Version 2)
Quarter: 2017Q4

REPORT INFORMATION
  Report Type: Spontaneous
  Country: FR (occurrence: FR)
  Receive Date: 20171005
  Receipt Date: 20171111
  Transmission Date: 20180321
  Serious: Yes (Other)
  Sender: FDA-Public Use
  Company Number: FR-SA-2017SA186511

PATIENT
  Age: 31 Year
  Sex: Female
  Weight: 49 kg

DRUGS (2)
  1. STILNOX [Suspect]
     Active Substance: ZOLPIDEM TARTRATE
     Indication: INSOMNIA
     Dosage: 1 DF DAILY IF NEEDED
     Route: 048
     Dates: start: 20170228
  2. STILNOX [Suspect]
     Active Substance: ZOLPIDEM TARTRATE
     Indication: SLEEP DISORDER
     Dosage: 1 DF DAILY IF NEEDED
     Route: 048
     Dates: start: 20170228

REACTIONS (5)
  - Post-traumatic amnestic disorder [Unknown]
  - Victim of chemical submission [Unknown]
  - Somnolence [Unknown]
  - Abnormal behaviour [Unknown]
  - Victim of sexual abuse [Unknown]

NARRATIVE: CASE EVENT DATE: 2017
